FAERS Safety Report 13992149 (Version 1)
Quarter: 2017Q3

REPORT INFORMATION
  Report Type: Spontaneous
  Country: US (occurrence: US)
  Receive Date: 20170920
  Receipt Date: 20170920
  Transmission Date: 20171128
  Serious: No
  Sender: FDA-Public Use
  Company Number: US-JNJFOC-20170819024

PATIENT
  Sex: Male
  Weight: 64.5 kg

DRUGS (3)
  1. TOPIRAMATE. [Suspect]
     Active Substance: TOPIRAMATE
     Indication: SCHIZOAFFECTIVE DISORDER
     Dosage: AT BEDTIME
     Route: 048
  2. TOPIRAMATE. [Suspect]
     Active Substance: TOPIRAMATE
     Indication: ANXIETY
     Dosage: AT BEDTIME
     Route: 048
  3. TOPIRAMATE. [Suspect]
     Active Substance: TOPIRAMATE
     Indication: MAJOR DEPRESSION
     Dosage: AT BEDTIME
     Route: 048

REACTIONS (2)
  - Off label use [Unknown]
  - Product use in unapproved indication [Unknown]
